FAERS Safety Report 7093387-5 (Version None)
Quarter: 2010Q4

REPORT INFORMATION
  Report Type: 
  Country: None (occurrence: None)
  Receive Date: 20101110
  Receipt Date: 20101027
  Transmission Date: 20110411
  Serious: Yes (Hospitalization)
  Sender: FDA-Public Use
  Company Number: PHHY2010AU73408

PATIENT
  Sex: Female

DRUGS (1)
  1. CLOZARIL [Suspect]
     Dosage: 625 MG, UNK
     Dates: start: 19930524

REACTIONS (2)
  - DECREASED ACTIVITY [None]
  - DRUG DOSE OMISSION [None]
